FAERS Safety Report 22075082 (Version 1)
Quarter: 2023Q1

REPORT INFORMATION
  Report Type: Spontaneous
  Country: IT (occurrence: None)
  Receive Date: 20230308
  Receipt Date: 20230308
  Transmission Date: 20230418
  Serious: Yes (Other)
  Sender: FDA-Public Use
  Company Number: 2023A043719

PATIENT
  Sex: Female

DRUGS (1)
  1. TAGRISSO [Suspect]
     Active Substance: OSIMERTINIB
     Indication: Neoplasm malignant
     Route: 048

REACTIONS (13)
  - Pleural effusion [Unknown]
  - Dyspnoea [Unknown]
  - Cough [Unknown]
  - Tachypnoea [Unknown]
  - Blood thyroid stimulating hormone increased [Unknown]
  - Respiratory disorder [Recovering/Resolving]
  - Abnormal sensation in eye [Recovering/Resolving]
  - Eye inflammation [Unknown]
  - Anorectal discomfort [Not Recovered/Not Resolved]
  - Blood pressure increased [Unknown]
  - Diarrhoea [Not Recovered/Not Resolved]
  - Epistaxis [Recovering/Resolving]
  - Stomatitis [Unknown]
